FAERS Safety Report 26071392 (Version 1)
Quarter: 2025Q4

REPORT INFORMATION
  Report Type: Spontaneous
  Country: US (occurrence: US)
  Receive Date: 20251120
  Receipt Date: 20251120
  Transmission Date: 20260117
  Serious: No
  Sender: SEPTODONT
  Company Number: US-SEPTODONT-2025019945

PATIENT
  Sex: Male

DRUGS (2)
  1. EPINEPHRINE BITARTRATE\LIDOCAINE HYDROCHLORIDE [Suspect]
     Active Substance: EPINEPHRINE BITARTRATE\LIDOCAINE HYDROCHLORIDE
     Indication: Dental local anaesthesia
     Dosage: NEVER RECEIVED MORE THAN 2 CARPULES.
     Route: 004
     Dates: start: 20250822
  2. Monoject Plastic Needles [Concomitant]

REACTIONS (2)
  - Drug ineffective [Unknown]
  - Discomfort [Unknown]

NARRATIVE: CASE EVENT DATE: 20250822
